FAERS Safety Report 20734074 (Version 10)
Quarter: 2023Q2

REPORT INFORMATION
  Report Type: Report from Study
  Country: CA (occurrence: CA)
  Receive Date: 20220421
  Receipt Date: 20230629
  Transmission Date: 20230722
  Serious: Yes (Other)
  Sender: FDA-Public Use
  Company Number: CA-JNJFOC-20220435022

PATIENT
  Age: 68 Year
  Sex: Male
  Weight: 99.88 kg

DRUGS (1)
  1. REMICADE [Suspect]
     Active Substance: INFLIXIMAB
     Indication: Crohn^s disease
     Dosage: THERAPY START DATE: 30/JUL/2022?EXPIRY DATE: 01-JUN-2025, 01-AUG-2025
     Route: 042
     Dates: start: 20210917

REACTIONS (6)
  - Bacteraemia [Unknown]
  - Nephrolithiasis [Recovered/Resolved]
  - Prostate cancer [Unknown]
  - COVID-19 [Recovered/Resolved]
  - Inappropriate schedule of product administration [Unknown]
  - Product dose omission issue [Unknown]

NARRATIVE: CASE EVENT DATE: 20220601
